FAERS Safety Report 23674976 (Version 1)
Quarter: 2024Q1

REPORT INFORMATION
  Report Type: Spontaneous
  Country: CN (occurrence: CN)
  Receive Date: 20240326
  Receipt Date: 20240326
  Transmission Date: 20240410
  Serious: Yes (Hospitalization)
  Sender: FDA-Public Use
  Company Number: CN-Merck Healthcare KGaA-2024014537

PATIENT
  Age: 57 Year
  Sex: Male
  Weight: 47 kg

DRUGS (6)
  1. ERBITUX [Suspect]
     Active Substance: CETUXIMAB
     Indication: External ear neoplasm malignant
     Dosage: 500 MG, UNKNOWN
     Route: 041
     Dates: start: 20240114
  2. DOCETAXEL [Suspect]
     Active Substance: DOCETAXEL\DOCETAXEL ANHYDROUS
     Indication: External ear neoplasm malignant
     Dosage: 80 MG, DAILY
     Route: 041
     Dates: start: 20240114, end: 20240114
  3. NEDAPLATIN [Suspect]
     Active Substance: NEDAPLATIN
     Indication: External ear neoplasm malignant
     Dosage: 80 MG, DAILY
     Route: 041
     Dates: start: 20240114, end: 20240114
  4. SODIUM CHLORIDE [Concomitant]
     Active Substance: SODIUM CHLORIDE
     Indication: Medication dilution
     Dosage: 500 ML, DAILY
     Route: 041
     Dates: start: 20240114, end: 20240114
  5. SODIUM CHLORIDE [Concomitant]
     Active Substance: SODIUM CHLORIDE
     Dosage: 250 ML, DAILY
     Route: 041
     Dates: start: 20240114, end: 20240114
  6. SODIUM CHLORIDE [Concomitant]
     Active Substance: SODIUM CHLORIDE
     Dosage: 500 ML, DAILY
     Route: 041
     Dates: start: 20240114, end: 20240114

REACTIONS (1)
  - Myelosuppression [Recovering/Resolving]

NARRATIVE: CASE EVENT DATE: 20240127
